FAERS Safety Report 23822122 (Version 3)
Quarter: 2024Q2

REPORT INFORMATION
  Report Type: Report from Study
  Country: CA (occurrence: CA)
  Receive Date: 20240506
  Receipt Date: 20240603
  Transmission Date: 20240716
  Serious: Yes (Hospitalization)
  Sender: FDA-Public Use
  Company Number: CA-SANDOZ-SDZ2023CA045558

PATIENT
  Sex: Male

DRUGS (2)
  1. ERELZI [Suspect]
     Active Substance: ETANERCEPT-SZZS
     Indication: Rheumatoid arthritis
     Dosage: 50MG ONCE WEEKLY;WEEKLY
     Route: 058
     Dates: start: 20230719
  2. ERELZI [Suspect]
     Active Substance: ETANERCEPT-SZZS
     Dosage: 50 MG
     Route: 058
     Dates: start: 20231020

REACTIONS (2)
  - Arthropathy [Unknown]
  - Product dose omission issue [Unknown]
